FAERS Safety Report 18569030 (Version 1)
Quarter: 2020Q4

REPORT INFORMATION
  Report Type: Spontaneous
  Country: US (occurrence: US)
  Receive Date: 20201202
  Receipt Date: 20201202
  Transmission Date: 20210114
  Serious: No
  Sender: FDA-Public Use
  Company Number: US-HIKMA PHARMACEUTICALS USA INC.-US-H14001-20-01469

PATIENT
  Age: 68 Year
  Sex: Male

DRUGS (17)
  1. VITAMIN D3 [Concomitant]
     Active Substance: CHOLECALCIFEROL
     Indication: PRODUCT USED FOR UNKNOWN INDICATION
     Route: 065
  2. SYNTHROID [Concomitant]
     Active Substance: LEVOTHYROXINE SODIUM
     Indication: PARATHYROIDECTOMY
     Route: 065
  3. CLONAZEPAM. [Concomitant]
     Active Substance: CLONAZEPAM
     Indication: MUSCLE SPASMS
  4. TESTOSTERONE GEL [Concomitant]
     Active Substance: TESTOSTERONE
     Indication: ORCHIDECTOMY
     Route: 065
  5. CLONAZEPAM. [Concomitant]
     Active Substance: CLONAZEPAM
     Indication: NEURALGIA
     Route: 065
  6. ZYDUS AMITRIPTYLINE [Suspect]
     Active Substance: AMITRIPTYLINE
     Indication: DEPRESSION
     Route: 048
  7. DUTASTERIDE. [Suspect]
     Active Substance: DUTASTERIDE
     Indication: DYSURIA
     Route: 048
     Dates: end: 20190529
  8. FIBER [Concomitant]
     Active Substance: PSYLLIUM HUSK
     Indication: PRODUCT USED FOR UNKNOWN INDICATION
     Route: 065
  9. CLONAZEPAM. [Concomitant]
     Active Substance: CLONAZEPAM
     Indication: BACK PAIN
  10. MIRALAX [Concomitant]
     Active Substance: POLYETHYLENE GLYCOL 3350
     Indication: PRODUCT USED FOR UNKNOWN INDICATION
     Route: 065
  11. TRAMADOL IR [Concomitant]
     Active Substance: TRAMADOL
     Indication: GROIN PAIN
     Route: 065
  12. CITRACAL [Concomitant]
     Active Substance: CALCIUM CITRATE
     Indication: PARATHYROIDECTOMY
     Dosage: CALCIUM (315 MG) + VITAMIN D3 (200 IU)
     Route: 065
  13. MULTIVITAMIN FOR MEN OVER 50 YEARS [Concomitant]
     Indication: PRODUCT USED FOR UNKNOWN INDICATION
     Route: 065
  14. VITAMIN C WITH ROSE HIPS [Concomitant]
     Indication: IMMUNE ENHANCEMENT THERAPY
     Route: 065
  15. HYDROXYCHLOROQUINE [Concomitant]
     Active Substance: HYDROXYCHLOROQUINE
     Indication: RHEUMATIC DISORDER
     Route: 065
  16. ESOMEPRAZOLE. [Concomitant]
     Active Substance: ESOMEPRAZOLE MAGNESIUM
     Indication: GASTROOESOPHAGEAL REFLUX DISEASE
     Route: 065
  17. GABAPENTIN. [Concomitant]
     Active Substance: GABAPENTIN
     Indication: GROIN PAIN
     Route: 065

REACTIONS (5)
  - Malaise [Recovering/Resolving]
  - Dizziness [Recovering/Resolving]
  - Depression [Unknown]
  - Nightmare [Unknown]
  - Feeling abnormal [Unknown]

NARRATIVE: CASE EVENT DATE: 2019
